FAERS Safety Report 8132282-7 (Version None)
Quarter: 2012Q1

REPORT INFORMATION
  Report Type: 
  Country: None (occurrence: None)
  Receive Date: 20120208
  Receipt Date: 20120124
  Transmission Date: 20120608
  Serious: Yes (Hospitalization)
  Sender: FDA-Public Use
  Company Number: DE201201007303

PATIENT
  Sex: Male

DRUGS (4)
  1. BYDUREON [Suspect]
     Indication: TYPE 2 DIABETES MELLITUS
     Dosage: 2 MG, SUBCUTANEOUS
     Route: 058
  2. LEVEMIR (INSULIN DETERMIR) [Concomitant]
  3. METFORMIN HCL [Concomitant]
  4. APIDRA [Concomitant]

REACTIONS (2)
  - INJECTION SITE ABSCESS [None]
  - OFF LABEL USE [None]
